FAERS Safety Report 7936760-2 (Version None)
Quarter: 2011Q4

REPORT INFORMATION
  Report Type: 
  Country: None (occurrence: None)
  Receive Date: 20111123
  Receipt Date: 20111114
  Transmission Date: 20120403
  Serious: Yes (Hospitalization)
  Sender: FDA-Public Use
  Company Number: US-BAYER-2011-049500

PATIENT
  Age: 35 Year
  Sex: Female

DRUGS (3)
  1. YAZ [Suspect]
     Indication: PREMENSTRUAL SYNDROME
     Dosage: UNK
     Route: 048
     Dates: start: 20070410, end: 20070601
  2. ALPRAZOLAM [Concomitant]
     Indication: SLEEP DISORDER THERAPY
     Dosage: UNK
     Dates: start: 20040801, end: 20070501
  3. LUNESTA [Concomitant]
     Indication: SLEEP DISORDER THERAPY
     Dosage: UNK
     Dates: start: 20051101, end: 20071101

REACTIONS (11)
  - EMOTIONAL DISTRESS [None]
  - GENERAL PHYSICAL HEALTH DETERIORATION [None]
  - NAUSEA [None]
  - ANXIETY [None]
  - ABDOMINAL PAIN [None]
  - PAIN [None]
  - CHOLECYSTITIS CHRONIC [None]
  - DYSKINESIA [None]
  - CHOLELITHIASIS [None]
  - VOMITING [None]
  - BILIARY COLIC [None]
